FAERS Safety Report 4342165-6 (Version None)
Quarter: 2004Q1

REPORT INFORMATION
  Report Type: 
  Country: None (occurrence: None)
  Receive Date: 20040329
  Receipt Date: 20031218
  Transmission Date: 20041129
  Serious: No
  Sender: FDA-Public Use
  Company Number: USA031254998

PATIENT
  Age: 7 Year
  Sex: Male
  Weight: 18 kg

DRUGS (1)
  1. STRATTERA [Suspect]
     Dates: start: 20021201

REACTIONS (2)
  - ARTHRALGIA [None]
  - INCREASED TENDENCY TO BRUISE [None]
